FAERS Safety Report 10085882 (Version 4)
Quarter: 2015Q1

REPORT INFORMATION
  Report Type: Spontaneous
  Country: US (occurrence: US)
  Receive Date: 20140418
  Receipt Date: 20150203
  Transmission Date: 20150720
  Serious: Yes (Hospitalization)
  Sender: FDA-Public Use
  Company Number: US-PFIZER INC-2014108309

PATIENT
  Age: 83 Year
  Sex: Female

DRUGS (6)
  1. SYSTANE (HYPROMELLOSE 2910 (4000 MPA.S)) [Concomitant]
     Active Substance: HYPROMELLOSE 2910 (4000 MPA.S)
     Dosage: 0.4% 0.3%, 1QAM EACH EYE AND PRN USE
     Route: 047
  2. TUMS [Concomitant]
     Active Substance: CALCIUM CARBONATE
     Dosage: UNK, AS NEEDED
  3. NYSTATIN. [Concomitant]
     Active Substance: NYSTATIN
     Dosage: 100000 UG, 2X/DAY
     Route: 061
  4. PRESERVISION AREDS [Concomitant]
     Dosage: UNK
  5. LYRICA [Suspect]
     Active Substance: PREGABALIN
     Indication: NEURALGIA
     Dosage: 75 MG,1 CAPSULE(S) TWICE A DAY BY ORAL ROUTE
     Route: 048
  6. CLOTRIMAZOLE. [Concomitant]
     Active Substance: CLOTRIMAZOLE
     Dosage: 1%, TOPICAL ROUTE 2 TIMES PER DAY IN THE MORNING AND EVENING
     Route: 061

REACTIONS (3)
  - Limb discomfort [Not Recovered/Not Resolved]
  - Confusional state [Recovered/Resolved]
  - Upper extremity mass [Recovered/Resolved]

NARRATIVE: CASE EVENT DATE: 201410
